FAERS Safety Report 7458368-8 (Version None)
Quarter: 2011Q2

REPORT INFORMATION
  Report Type: 
  Country: None (occurrence: None)
  Receive Date: 20110426
  Receipt Date: 20110411
  Transmission Date: 20111010
  Serious: Yes (Death, Other)
  Sender: FDA-Public Use
  Company Number: FK201100725

PATIENT
  Age: 55 Year
  Sex: Male

DRUGS (4)
  1. PREDNISOLONE [Suspect]
     Indication: STEROID THERAPY
     Dosage: 60 MG, DAY ; DOSE REDUCED
  2. METHYLPREDNISOLONE SODIUM SUCCINATE [Suspect]
     Indication: STEROID THERAPY
     Dosage: 500 MG, FOR 3 DAYS
  3. PROTON PUMP INHIBITOR (PROTON PUMP INHIBITORS) [Concomitant]
  4. CYCLOSPORINE [Suspect]
     Indication: ANTIBIOTIC THERAPY
     Dosage: 150 MG, STARTED 19 DAYS AFTER METHYLPREDNISOLONE

REACTIONS (6)
  - ANAEMIA [None]
  - JEJUNAL ULCER [None]
  - CYTOMEGALOVIRUS INFECTION [None]
  - GASTROINTESTINAL HAEMORRHAGE [None]
  - SHOCK HAEMORRHAGIC [None]
  - DUODENAL ULCER [None]
